FAERS Safety Report 18900436 (Version 1)
Quarter: 2021Q1

REPORT INFORMATION
  Report Type: Spontaneous
  Country: FR (occurrence: FR)
  Receive Date: 20210216
  Receipt Date: 20210216
  Transmission Date: 20210420
  Serious: Yes (Other)
  Sender: FDA-Public Use
  Company Number: FR-EXELTIS PHARMACEUTICAL HOLDING, S.L.-2102FR00116

PATIENT
  Sex: Female

DRUGS (1)
  1. SLINDA [Suspect]
     Active Substance: DROSPIRENONE
     Indication: CONTRACEPTION
     Dosage: 4 MILLIGRAM, QD
     Route: 048

REACTIONS (3)
  - Drug ineffective [Unknown]
  - Pregnancy on oral contraceptive [Recovered/Resolved]
  - Abortion spontaneous [Unknown]
